FAERS Safety Report 8525132-8 (Version None)
Quarter: 2012Q3

REPORT INFORMATION
  Report Type: 
  Country: None (occurrence: None)
  Receive Date: 20120720
  Receipt Date: 20120710
  Transmission Date: 20120928
  Serious: Yes (Hospitalization)
  Sender: FDA-Public Use
  Company Number: US-BAXTER-2012BAX010970

PATIENT
  Sex: Female

DRUGS (6)
  1. DIANEAL [Suspect]
     Route: 033
  2. DIANEAL LOW CALCIUM W/ DEXTROSE 1.5% [Suspect]
     Route: 033
  3. DIANEAL LOW CALCIUM W/ DEXTROSE 1.5% [Suspect]
     Route: 033
  4. DIANEAL LOW CALCIUM W/ DEXTROSE 1.5% [Suspect]
     Indication: PERITONEAL DIALYSIS
     Route: 033
  5. DIANEAL [Suspect]
     Indication: PERITONEAL DIALYSIS
     Route: 033
  6. DIANEAL [Suspect]
     Route: 033

REACTIONS (5)
  - SINUSITIS [None]
  - PYREXIA [None]
  - ANAEMIA [None]
  - URINARY TRACT INFECTION [None]
  - HYPERTENSION [None]
